FAERS Safety Report 21582511 (Version 6)
Quarter: 2022Q4

REPORT INFORMATION
  Report Type: Spontaneous
  Country: US (occurrence: US)
  Receive Date: 20221111
  Receipt Date: 20221216
  Transmission Date: 20230112
  Serious: Yes (Other)
  Sender: FDA-Public Use
  Company Number: US-AMGEN-USASP2022192127

PATIENT
  Sex: Female

DRUGS (1)
  1. NEULASTA [Suspect]
     Active Substance: PEGFILGRASTIM
     Indication: Neutropenia
     Dosage: 6 MILLIGRAM, Q3WK
     Route: 058

REACTIONS (4)
  - White blood cell count decreased [Recovering/Resolving]
  - Application site pain [Recovering/Resolving]
  - Device physical property issue [Recovering/Resolving]
  - Device alarm issue [Unknown]

NARRATIVE: CASE EVENT DATE: 20221001
